FAERS Safety Report 6091636-3 (Version None)
Quarter: 2009Q1

REPORT INFORMATION
  Report Type: 
  Country: None (occurrence: None)
  Receive Date: 20090225
  Receipt Date: 20080328
  Transmission Date: 20090719
  Serious: No
  Sender: FDA-Public Use
  Company Number: A0715265A

PATIENT
  Age: 23 Year
  Sex: Female

DRUGS (2)
  1. VALTREX [Suspect]
     Indication: HERPES VIRUS INFECTION
     Dosage: 500MG TWICE PER DAY
     Route: 048
     Dates: start: 20050101, end: 20060601
  2. BIRTH CONTROL [Concomitant]

REACTIONS (5)
  - DRUG INEFFECTIVE [None]
  - FEELING HOT [None]
  - HYPERSENSITIVITY [None]
  - ILL-DEFINED DISORDER [None]
  - RASH ERYTHEMATOUS [None]
